FAERS Safety Report 19123243 (Version 2)
Quarter: 2021Q2

REPORT INFORMATION
  Report Type: Spontaneous
  Country: US (occurrence: US)
  Receive Date: 20210413
  Receipt Date: 20210601
  Transmission Date: 20210717
  Serious: Yes (Other)
  Sender: FDA-Public Use
  Company Number: US-ASTRAZENECA-2021A275576

PATIENT
  Sex: Female
  Weight: 87.1 kg

DRUGS (2)
  1. BYDUREON [Suspect]
     Active Substance: EXENATIDE
     Route: 058
     Dates: end: 20210328
  2. BYDUREON BCISE [Suspect]
     Active Substance: EXENATIDE
     Indication: TYPE 2 DIABETES MELLITUS
     Route: 058
     Dates: start: 2018

REACTIONS (7)
  - Neoplasm malignant [Unknown]
  - Device leakage [Unknown]
  - Device delivery system issue [Unknown]
  - Device malfunction [Unknown]
  - Injection site haemorrhage [Unknown]
  - Device use issue [Recovered/Resolved]
  - Device issue [Unknown]
